FAERS Safety Report 25363343 (Version 1)
Quarter: 2025Q2

REPORT INFORMATION
  Report Type: Spontaneous
  Country: FR (occurrence: FR)
  Receive Date: 20250527
  Receipt Date: 20250527
  Transmission Date: 20250717
  Serious: Yes (Other)
  Sender: BAYER HEALTHCARE PHARMACEUTICALS INC.
  Company Number: None

PATIENT
  Age: 43 Year
  Sex: Female
  Weight: 64 kg

DRUGS (1)
  1. MIRENA [Suspect]
     Active Substance: LEVONORGESTREL
     Indication: Contraceptive implant
     Dosage: 20?G/DAY
     Route: 015
     Dates: start: 20240906, end: 20250425

REACTIONS (7)
  - Migraine with aura [Recovering/Resolving]
  - Overweight [Recovering/Resolving]
  - Acne [Recovering/Resolving]
  - Arthralgia [Recovering/Resolving]
  - Palpitations [Recovering/Resolving]
  - Blood pressure fluctuation [Recovering/Resolving]
  - Anxiety [Recovered/Resolved]

NARRATIVE: CASE EVENT DATE: 20250101
